FAERS Safety Report 24057469 (Version 1)
Quarter: 2024Q3

REPORT INFORMATION
  Report Type: Spontaneous
  Country: US (occurrence: US)
  Receive Date: 20240706
  Receipt Date: 20240706
  Transmission Date: 20241016
  Serious: No
  Sender: ABBVIE
  Company Number: US-ABBVIE-5826117

PATIENT
  Age: 50 Year
  Sex: Female

DRUGS (1)
  1. LATISSE [Suspect]
     Active Substance: BIMATOPROST
     Indication: Product used for unknown indication
     Dosage: STRENGTH: 0.3MG/ML SOL
     Route: 047
     Dates: start: 2015

REACTIONS (1)
  - Iris discolouration [Unknown]
